FAERS Safety Report 12276165 (Version 1)
Quarter: 2016Q2

REPORT INFORMATION
  Report Type: Spontaneous
  Country: US (occurrence: US)
  Receive Date: 20160418
  Receipt Date: 20160418
  Transmission Date: 20160815
  Serious: No
  Sender: FDA-Public Use
  Company Number: US-BAYER-2016-072476

PATIENT
  Age: 78 Year
  Sex: Female

DRUGS (1)
  1. FINACEA [Suspect]
     Active Substance: AZELAIC ACID
     Indication: SKIN DISCOLOURATION
     Dosage: UNK
     Route: 061
     Dates: start: 201511, end: 201511

REACTIONS (1)
  - Rash macular [Not Recovered/Not Resolved]

NARRATIVE: CASE EVENT DATE: 201511
